FAERS Safety Report 26102914 (Version 1)
Quarter: 2025Q4

REPORT INFORMATION
  Report Type: Report from Study
  Country: US (occurrence: US)
  Receive Date: 20251128
  Receipt Date: 20251128
  Transmission Date: 20260119
  Serious: Yes (Other)
  Sender: ABBVIE
  Company Number: US-ABBVIE-6114985

PATIENT
  Sex: Female

DRUGS (2)
  1. RINVOQ [Suspect]
     Active Substance: UPADACITINIB
     Indication: Rheumatoid arthritis
     Route: 048
     Dates: start: 20210615
  2. RINVOQ [Suspect]
     Active Substance: UPADACITINIB
     Indication: Rheumatoid arthritis
     Route: 048
     Dates: start: 20211101, end: 2023

REACTIONS (4)
  - Multiple sclerosis [Not Recovered/Not Resolved]
  - Cholelithiasis [Unknown]
  - Scleroderma [Not Recovered/Not Resolved]
  - Oesophageal achalasia [Not Recovered/Not Resolved]
